FAERS Safety Report 9161494 (Version 1)
Quarter: 2013Q1

REPORT INFORMATION
  Report Type: Spontaneous
  Country: GR (occurrence: GR)
  Receive Date: 20130313
  Receipt Date: 20130313
  Transmission Date: 20140127
  Serious: Yes (Other)
  Sender: FDA-Public Use
  Company Number: GR-B.I. PHARMACEUTICALS,INC./RIDGEFIELD-2013-BI-06510GB

PATIENT
  Age: 70 Year
  Sex: Female

DRUGS (6)
  1. PRADAXA [Suspect]
     Indication: ATRIAL FIBRILLATION
     Dosage: 220 MG
     Route: 048
     Dates: start: 201211
  2. SALOSPIR [Concomitant]
     Indication: ATRIAL FIBRILLATION
     Route: 048
     Dates: start: 201211
  3. RESERPINE + CHLOROTHIAZIDE [Concomitant]
     Indication: HYPERTENSION
     Route: 048
     Dates: start: 201211
  4. NIFEDIPINE [Concomitant]
     Indication: HYPERTENSION
     Route: 048
     Dates: start: 201211
  5. DIGOXIN [Concomitant]
     Indication: CARDIAC FAILURE
     Route: 048
     Dates: start: 201211
  6. UNSPECIFIED B-BLOCKER [Concomitant]
     Indication: HYPERTENSION
     Route: 048
     Dates: start: 201211

REACTIONS (1)
  - Transient ischaemic attack [Recovered/Resolved]
